FAERS Safety Report 5494594-5 (Version None)
Quarter: 2007Q4

REPORT INFORMATION
  Report Type: 
  Country: None (occurrence: None)
  Receive Date: 20071022
  Receipt Date: 20071011
  Transmission Date: 20080405
  Serious: Yes (Hospitalization)
  Sender: FDA-Public Use
  Company Number: 2007SP019304

PATIENT
  Age: 50 Year
  Sex: Female

DRUGS (2)
  1. PEG-INTRON [Suspect]
     Indication: HEPATITIS C
     Dosage: SC
     Route: 058
     Dates: start: 20070626, end: 20070807
  2. REBETOL [Suspect]
     Indication: HEPATITIS C
     Dosage: PO
     Route: 048
     Dates: start: 20070626, end: 20070807

REACTIONS (13)
  - ASTHENIA [None]
  - BIPOLAR DISORDER [None]
  - BRONCHITIS [None]
  - CARDIOVASCULAR DISORDER [None]
  - CONDITION AGGRAVATED [None]
  - FEAR [None]
  - FEELING ABNORMAL [None]
  - FLANK PAIN [None]
  - HEPATIC PAIN [None]
  - ILL-DEFINED DISORDER [None]
  - LUNG DISORDER [None]
  - PERICARDIAL EFFUSION [None]
  - PNEUMONIA [None]
